FAERS Safety Report 8151655-X (Version None)
Quarter: 2012Q1

REPORT INFORMATION
  Report Type: 
  Country: None (occurrence: None)
  Receive Date: 20120220
  Receipt Date: 20120215
  Transmission Date: 20120608
  Serious: Yes (Other)
  Sender: FDA-Public Use
  Company Number: US-VERTEX PHARMACEUTICALS INC.-AE-2012-002285

PATIENT
  Age: 50 Year
  Sex: Male

DRUGS (3)
  1. INCIVEK [Suspect]
     Indication: HEPATITIS C
     Route: 050
     Dates: start: 20120101
  2. RIBAVIRIN [Concomitant]
     Indication: HEPATITIS C
  3. PEGINTERFERON ALFA-2B [Concomitant]
     Indication: HEPATITIS C

REACTIONS (2)
  - ERYTHEMA MULTIFORME [None]
  - INJECTION SITE INFLAMMATION [None]
